FAERS Safety Report 19407938 (Version 1)
Quarter: 2021Q2

REPORT INFORMATION
  Report Type: Spontaneous
  Country: US (occurrence: US)
  Receive Date: 20210611
  Receipt Date: 20210611
  Transmission Date: 20210717
  Serious: No
  Sender: FDA-Public Use
  Company Number: US-SUNOVION-2021SUN002146

PATIENT
  Age: 54 Year
  Sex: Female

DRUGS (1)
  1. LATUDA [Suspect]
     Active Substance: LURASIDONE HYDROCHLORIDE
     Dosage: 40 MG, QD (80 MG HALF A TABLET A DAY)
     Route: 048

REACTIONS (2)
  - Depressed mood [Unknown]
  - Wrong technique in product usage process [Unknown]
